FAERS Safety Report 25716758 (Version 1)
Quarter: 2025Q3

REPORT INFORMATION
  Report Type: Other
  Country: GB (occurrence: GB)
  Receive Date: 20250822
  Receipt Date: 20250822
  Transmission Date: 20251021
  Serious: Yes (Disabling, Other)
  Sender: Alora Pharma
  Company Number: GB-VERTICAL PHARMACEUTICALS-2025ALO02446

PATIENT
  Age: 44 Year
  Sex: Female
  Weight: 88 kg

DRUGS (1)
  1. ESTRADIOL [Suspect]
     Active Substance: ESTRADIOL
     Indication: Product used for unknown indication
     Dates: start: 2025, end: 2025

REACTIONS (2)
  - Depression [Recovered/Resolved]
  - Lethargy [Recovered/Resolved]

NARRATIVE: CASE EVENT DATE: 20250101
